FAERS Safety Report 9298952 (Version 1)
Quarter: 2013Q2

REPORT INFORMATION
  Report Type: Spontaneous
  Country: US (occurrence: US)
  Receive Date: 20130520
  Receipt Date: 20130520
  Transmission Date: 20140414
  Serious: No
  Sender: FDA-Public Use
  Company Number: US-SANOFI-AVENTIS-2013SA000618

PATIENT
  Age: 89 Year
  Sex: Female

DRUGS (4)
  1. APIDRA [Suspect]
     Dosage: DOSE:12 UNIT(S)
     Route: 058
     Dates: start: 2010
  2. APIDRA [Suspect]
     Dosage: DOSE:14 UNIT(S)
     Route: 058
     Dates: start: 2010
  3. APIDRA [Suspect]
     Dosage: DOSE:10 UNIT(S)
     Route: 058
     Dates: start: 2012
  4. LANTUS [Suspect]
     Dosage: DOSE:45 UNIT(S)
     Route: 051
     Dates: start: 2008

REACTIONS (2)
  - Fatigue [Unknown]
  - Nausea [Unknown]
